FAERS Safety Report 13800323 (Version 1)
Quarter: 2017Q3

REPORT INFORMATION
  Report Type: Report from Study
  Country: JP (occurrence: JP)
  Receive Date: 20170727
  Receipt Date: 20170727
  Transmission Date: 20171127
  Serious: Yes (Other)
  Sender: FDA-Public Use
  Company Number: JP-AMGEN-JPNNI2017113386

PATIENT
  Age: 74 Year
  Sex: Female
  Weight: 52 kg

DRUGS (30)
  1. ENDOXAN                            /00021101/ [Suspect]
     Active Substance: CYCLOPHOSPHAMIDE
     Indication: BREAST CANCER
     Dosage: 550 MG, UNK
     Route: 041
     Dates: start: 20161117, end: 20161117
  2. ALOXI [Concomitant]
     Active Substance: PALONOSETRON HYDROCHLORIDE
     Dosage: UNK
     Route: 065
  3. EPIRUBICIN HYDROCHLORIDE. [Suspect]
     Active Substance: EPIRUBICIN HYDROCHLORIDE
     Dosage: 100 MG, UNK
     Route: 041
     Dates: start: 20161208, end: 20161208
  4. EPIRUBICIN HYDROCHLORIDE. [Suspect]
     Active Substance: EPIRUBICIN HYDROCHLORIDE
     Dosage: 80 MG, UNK
     Route: 041
     Dates: start: 20170105, end: 20170105
  5. ENDOXAN                            /00021101/ [Suspect]
     Active Substance: CYCLOPHOSPHAMIDE
     Dosage: 400 MG, UNK
     Route: 041
     Dates: start: 20170105, end: 20170105
  6. FILGRASTIM RECOMBINANT [Concomitant]
     Indication: NEUTROPHIL COUNT DECREASED
     Dosage: 75 MUG, UNK
     Route: 041
     Dates: start: 20161124, end: 20161127
  7. REBAMIPIDE [Concomitant]
     Active Substance: REBAMIPIDE
     Indication: BREAST CANCER
     Dosage: UNK
     Route: 048
  8. PEGFILGRASTIM [Suspect]
     Active Substance: PEGFILGRASTIM
     Dosage: 3.6 MG, UNK
     Route: 058
     Dates: start: 20161209, end: 20161209
  9. 5-FU                               /00098801/ [Suspect]
     Active Substance: FLUOROURACIL
     Dosage: 400 MG, UNK
     Route: 041
     Dates: start: 20170105, end: 20170105
  10. PROEMEND [Concomitant]
     Active Substance: FOSAPREPITANT
     Dosage: UNK
     Route: 041
  11. ALOXI [Concomitant]
     Active Substance: PALONOSETRON HYDROCHLORIDE
     Indication: BREAST CANCER
     Dosage: UNK
     Route: 065
  12. DECADRON [Concomitant]
     Active Substance: DEXAMETHASONE
     Dosage: UNK
     Route: 065
  13. DECADRON [Concomitant]
     Active Substance: DEXAMETHASONE
     Dosage: UNK
     Route: 065
  14. 5-FU                               /00098801/ [Suspect]
     Active Substance: FLUOROURACIL
     Indication: BREAST CANCER
     Dosage: 550 MG, UNK
     Route: 041
     Dates: start: 20161117, end: 20161117
  15. 5-FU                               /00098801/ [Suspect]
     Active Substance: FLUOROURACIL
     Dosage: 500 MG, UNK
     Route: 041
     Dates: start: 20161208, end: 20161208
  16. DECADRON [Concomitant]
     Active Substance: DEXAMETHASONE
     Indication: BREAST CANCER
     Dosage: UNK
     Route: 065
  17. PEGFILGRASTIM [Suspect]
     Active Substance: PEGFILGRASTIM
     Indication: COLONY STIMULATING FACTOR PROPHYLAXIS
     Dosage: 3.6 MG, UNK
     Route: 058
     Dates: start: 20161118, end: 20161118
  18. PROEMEND [Concomitant]
     Active Substance: FOSAPREPITANT
     Indication: BREAST CANCER
     Dosage: UNK
     Route: 041
  19. ALOXI [Concomitant]
     Active Substance: PALONOSETRON HYDROCHLORIDE
     Dosage: UNK
     Route: 041
  20. ALOXI [Concomitant]
     Active Substance: PALONOSETRON HYDROCHLORIDE
     Dosage: UNK
     Route: 041
  21. DECADRON [Concomitant]
     Active Substance: DEXAMETHASONE
     Dosage: UNK
     Route: 065
  22. REBAMIPIDE [Concomitant]
     Active Substance: REBAMIPIDE
     Dosage: UNK
     Route: 048
  23. REBAMIPIDE [Concomitant]
     Active Substance: REBAMIPIDE
     Dosage: UNK
     Route: 048
  24. PEGFILGRASTIM [Suspect]
     Active Substance: PEGFILGRASTIM
     Dosage: 3.6 MG, UNK
     Route: 058
     Dates: start: 20170106, end: 20170106
  25. EPIRUBICIN HYDROCHLORIDE. [Suspect]
     Active Substance: EPIRUBICIN HYDROCHLORIDE
     Indication: BREAST CANCER
     Dosage: 110 MG, UNK
     Route: 041
     Dates: start: 20161117, end: 20161117
  26. ENDOXAN                            /00021101/ [Suspect]
     Active Substance: CYCLOPHOSPHAMIDE
     Dosage: 500 MG, UNK
     Route: 041
     Dates: start: 20161208, end: 20161208
  27. PROEMEND [Concomitant]
     Active Substance: FOSAPREPITANT
     Dosage: UNK
     Route: 041
  28. REBAMIPIDE [Concomitant]
     Active Substance: REBAMIPIDE
     Dosage: UNK
     Route: 048
  29. PROEMEND [Concomitant]
     Active Substance: FOSAPREPITANT
     Dosage: UNK
     Route: 041
  30. ZOLPIDEM TARTRATE. [Concomitant]
     Active Substance: ZOLPIDEM TARTRATE
     Indication: INSOMNIA
     Dosage: UNK
     Route: 048

REACTIONS (3)
  - Colony stimulating factor therapy [Unknown]
  - Neutrophil count decreased [Recovered/Resolved]
  - Decreased appetite [Recovered/Resolved]

NARRATIVE: CASE EVENT DATE: 20161124
